FAERS Safety Report 6277459-0 (Version None)
Quarter: 2009Q3

REPORT INFORMATION
  Report Type: 
  Country: None (occurrence: None)
  Receive Date: 20090722
  Receipt Date: 20090710
  Transmission Date: 20100115
  Serious: Yes (Hospitalization)
  Sender: FDA-Public Use
  Company Number: IT-PFIZER INC-2009235207

PATIENT
  Age: 66 Year

DRUGS (8)
  1. EPIRUBICIN HCL [Suspect]
     Indication: BREAST CANCER
     Dosage: UNK
     Route: 042
     Dates: start: 20090513, end: 20090513
  2. CYCLOPHOSPHAMIDE [Suspect]
     Indication: BREAST CANCER
     Route: 042
  3. KARVEA [Concomitant]
     Route: 048
  4. SIMVASTATIN [Concomitant]
     Route: 048
  5. NITROCOR [Concomitant]
     Route: 062
  6. ACETYLSALICYLIC ACID [Concomitant]
     Dosage: 100
     Route: 048
  7. BISOPROLOL [Concomitant]
     Route: 048
  8. CIPROFLOXACIN HCL [Concomitant]
     Dosage: 300
     Route: 048

REACTIONS (2)
  - ANAL SPHINCTER ATONY [None]
  - LOSS OF CONSCIOUSNESS [None]
